FAERS Safety Report 7183423-X (Version None)
Quarter: 2010Q4

REPORT INFORMATION
  Report Type: 
  Country: None (occurrence: None)
  Receive Date: 20101222
  Receipt Date: 20101203
  Transmission Date: 20110411
  Serious: No
  Sender: FDA-Public Use
  Company Number: US-B.I. PHARMACEUTICALS,INC./RIDGEFIELD-2010-BP-13820BP

PATIENT
  Age: 75 Year
  Sex: Male

DRUGS (3)
  1. PRADAXA [Suspect]
     Indication: CEREBROVASCULAR ACCIDENT PROPHYLAXIS
     Dosage: 300 MG
     Route: 048
     Dates: start: 20101110
  2. PRADAXA [Suspect]
     Indication: ATRIAL FIBRILLATION
  3. CARVEDILOL [Concomitant]
     Indication: CARDIAC DISORDER

REACTIONS (1)
  - BLOOD TEST ABNORMAL [None]
